FAERS Safety Report 25990701 (Version 1)
Quarter: 2025Q4

REPORT INFORMATION
  Report Type: Report from Study
  Country: EU (occurrence: EU)
  Receive Date: 20251103
  Receipt Date: 20251103
  Transmission Date: 20260118
  Serious: Yes (Hospitalization)
  Sender: VERTEX
  Company Number: EU-VERTEX PHARMACEUTICALS-2025-018310

PATIENT
  Age: 24 Year
  Sex: Female

DRUGS (2)
  1. IVACAFTOR\TEZACAFTOR [Suspect]
     Active Substance: IVACAFTOR\TEZACAFTOR
     Indication: Cystic fibrosis
     Dosage: TEZACAFTOR/IVACAFTOR
     Route: 048
  2. KALYDECO [Suspect]
     Active Substance: IVACAFTOR
     Indication: Cystic fibrosis
     Dosage: UNK
     Route: 048

REACTIONS (8)
  - Abdominal hernia [Unknown]
  - Vein disorder [Unknown]
  - Pancreatic disorder [Unknown]
  - Malnutrition [Unknown]
  - Bronchiectasis [Unknown]
  - Respiratory tract haemorrhage [Unknown]
  - Type 2 diabetes mellitus [Unknown]
  - Varices oesophageal [Unknown]

NARRATIVE: CASE EVENT DATE: 20241204
